FAERS Safety Report 9537564 (Version 1)
Quarter: 2013Q3

REPORT INFORMATION
  Report Type: Spontaneous
  Country: GB (occurrence: GB)
  Receive Date: 20130919
  Receipt Date: 20130919
  Transmission Date: 20140515
  Serious: Yes (Other)
  Sender: FDA-Public Use
  Company Number: GB-009507513-1309GBR005219

PATIENT
  Age: 44 Year
  Sex: Female
  Weight: 89.16 kg

DRUGS (4)
  1. MIRTAZAPINE [Suspect]
     Indication: DEPRESSED MOOD
     Dosage: 15 MG, UNK
     Route: 048
     Dates: start: 20130802
  2. CLENIL MODULITE [Concomitant]
     Dosage: UNK
     Dates: start: 20130508, end: 20130605
  3. TRAZODONE HYDROCHLORIDE [Concomitant]
     Dosage: UNK
     Dates: start: 20130508, end: 20130809
  4. VENTOLIN (ALBUTEROL SULFATE) [Concomitant]
     Dosage: UNK
     Dates: start: 20130508, end: 20130605

REACTIONS (1)
  - Suicidal ideation [Recovered/Resolved]
